FAERS Safety Report 5914035-0 (Version None)
Quarter: 2008Q4

REPORT INFORMATION
  Report Type: 
  Country: None (occurrence: None)
  Receive Date: 20081009
  Receipt Date: 20081007
  Transmission Date: 20090506
  Serious: Yes (Hospitalization)
  Sender: FDA-Public Use
  Company Number: US-ELI_LILLY_AND_COMPANY-US200810001757

PATIENT
  Sex: Male

DRUGS (1)
  1. HUMULIN 70/30 [Suspect]

REACTIONS (7)
  - COMA [None]
  - CONVULSION [None]
  - FALL [None]
  - PAIN [None]
  - RIB FRACTURE [None]
  - VISION BLURRED [None]
  - VISUAL IMPAIRMENT [None]
